FAERS Safety Report 4652926-1 (Version None)
Quarter: 2005Q2

REPORT INFORMATION
  Report Type: 
  Country: None (occurrence: None)
  Receive Date: 20050503
  Receipt Date: 20050422
  Transmission Date: 20051028
  Serious: Yes (Hospitalization, Other)
  Sender: FDA-Public Use
  Company Number: L05-IND-01483-01

PATIENT
  Age: 50 Year
  Sex: Male

DRUGS (1)
  1. CARBAMAZEPINE [Suspect]
     Indication: EPILEPSY
     Dosage: 200 MG QD

REACTIONS (7)
  - DERMATITIS EXFOLIATIVE [None]
  - EOSINOPHILIA [None]
  - FACE OEDEMA [None]
  - LEUKAEMOID REACTION [None]
  - OEDEMA PERIPHERAL [None]
  - PITTING OEDEMA [None]
  - POST INFLAMMATORY PIGMENTATION CHANGE [None]
